FAERS Safety Report 14773351 (Version 2)
Quarter: 2018Q3

REPORT INFORMATION
  Report Type: Spontaneous
  Country: BR (occurrence: BR)
  Receive Date: 20180418
  Receipt Date: 20180810
  Transmission Date: 20181010
  Serious: Yes (Death, Hospitalization, Other)
  Sender: FDA-Public Use
  Company Number: BR-BRISTOL-MYERS SQUIBB COMPANY-BMS-2018-035233

PATIENT
  Age: 74 Year
  Sex: Male

DRUGS (1)
  1. NIVOLUMAB [Suspect]
     Active Substance: NIVOLUMAB
     Indication: LUNG ADENOCARCINOMA
     Dosage: NOT PROVIDED
     Route: 042

REACTIONS (10)
  - Embolism [Unknown]
  - Bundle branch block [Unknown]
  - Arrhythmia [Fatal]
  - Blood potassium increased [Unknown]
  - Cardiogenic shock [Fatal]
  - Chest pain [Unknown]
  - Dehydration [Unknown]
  - Asthenia [Unknown]
  - Atrial flutter [Unknown]
  - Blood creatinine abnormal [Unknown]
